FAERS Safety Report 25529929 (Version 1)
Quarter: 2025Q3

REPORT INFORMATION
  Report Type: Spontaneous
  Country: CA (occurrence: CA)
  Receive Date: 20250708
  Receipt Date: 20250708
  Transmission Date: 20251021
  Serious: Yes (Life-Threatening, Hospitalization, Other)
  Sender: PFIZER
  Company Number: CA-PFIZER INC-202500137173

PATIENT
  Age: 7 Year
  Sex: Male

DRUGS (2)
  1. METHOTREXATE SODIUM [Suspect]
     Active Substance: METHOTREXATE SODIUM
     Indication: T-cell type acute leukaemia
     Dosage: 25 MG, WEEKLY (1 EVERY 1 WEEKS)
     Route: 048
  2. MERCAPTOPURINE [Suspect]
     Active Substance: MERCAPTOPURINE
     Indication: T-cell type acute leukaemia
     Dosage: 90 MG, 1X/DAY (1 EVERY 1 DAYS)
     Route: 048

REACTIONS (3)
  - Febrile neutropenia [Recovered/Resolved]
  - Enterococcus test positive [Recovered/Resolved]
  - Influenza A virus test positive [Recovered/Resolved]
